FAERS Safety Report 7688874 (Version 2)
Quarter: 2012Q4

REPORT INFORMATION
  Report Type: 
  Country: US (occurrence: US)
  Receive Date: 20101201
  Receipt Date: 20121219
  Transmission Date: 20130627
  Serious: Yes (Other)
  Sender: FDA-Public Use
  Company Number: US-PFIZER INC-2010153648

PATIENT
  Age: 56 Year
  Sex: Female
  Weight: 81.63 kg

DRUGS (4)
  1. PRISTIQ [Suspect]
     Indication: DEPRESSION
     Dosage: UNK
     Route: 048
     Dates: start: 2008, end: 2009
  2. SIMVASTATIN [Concomitant]
     Dosage: 40 mg, UNK
  3. WELCHOL [Concomitant]
     Dosage: 625 mg, UNK
  4. SYNTHROID [Concomitant]
     Indication: HYPOTHYROIDISM
     Dosage: 0.112 mg, UNK

REACTIONS (2)
  - Post procedural complication [Unknown]
  - Dysphagia [Unknown]
